FAERS Safety Report 10624810 (Version 10)
Quarter: 2016Q3

REPORT INFORMATION
  Report Type: Spontaneous
  Country: CA (occurrence: CA)
  Receive Date: 20141204
  Receipt Date: 20160714
  Transmission Date: 20161109
  Serious: Yes (Other)
  Sender: FDA-Public Use
  Company Number: CA-ROCHE-1325548

PATIENT
  Age: 14 Year
  Sex: Male

DRUGS (11)
  1. XOLAIR [Suspect]
     Active Substance: OMALIZUMAB
     Dosage: UNK
     Route: 058
     Dates: start: 20130123
  2. XOLAIR [Suspect]
     Active Substance: OMALIZUMAB
     Indication: ASTHMA
     Dosage: 225 MG, BIW
     Route: 058
     Dates: start: 20120220
  3. XOLAIR [Suspect]
     Active Substance: OMALIZUMAB
     Dosage: UNK
     Route: 058
     Dates: start: 20160413
  4. SYMBICORT [Concomitant]
     Active Substance: BUDESONIDE\FORMOTEROL FUMARATE DIHYDRATE
  5. XOLAIR [Suspect]
     Active Substance: OMALIZUMAB
     Dosage: UNK
     Route: 058
     Dates: start: 20151028
  6. XOLAIR [Suspect]
     Active Substance: OMALIZUMAB
     Dosage: UNK
     Route: 058
     Dates: start: 20160623
  7. ADVAIR HFA [Concomitant]
     Active Substance: FLUTICASONE PROPIONATE\SALMETEROL XINAFOATE
  8. SINGULAIR [Concomitant]
     Active Substance: MONTELUKAST SODIUM
  9. XOLAIR [Suspect]
     Active Substance: OMALIZUMAB
     Dosage: UNK
     Route: 058
     Dates: start: 20120418
  10. AVAMYS [Concomitant]
     Active Substance: FLUTICASONE FUROATE
  11. XOLAIR [Suspect]
     Active Substance: OMALIZUMAB
     Dosage: UNK
     Route: 058
     Dates: start: 20160706

REACTIONS (17)
  - Malaise [Unknown]
  - Fall [Unknown]
  - Injection site pain [Unknown]
  - Blood pressure decreased [Unknown]
  - Sinusitis [Unknown]
  - Injection site rash [Unknown]
  - Injection site oedema [Unknown]
  - Pyrexia [Recovered/Resolved]
  - Gastroenteritis [Recovering/Resolving]
  - Pain in extremity [Unknown]
  - Body temperature decreased [Unknown]
  - Injection site erythema [Not Recovered/Not Resolved]
  - Pneumonia [Recovering/Resolving]
  - Joint dislocation [Unknown]
  - Incorrect route of drug administration [Unknown]
  - Paraesthesia [Unknown]
  - Hypersensitivity [Unknown]

NARRATIVE: CASE EVENT DATE: 20120220
